FAERS Safety Report 23168404 (Version 1)
Quarter: 2023Q4

REPORT INFORMATION
  Report Type: Spontaneous
  Country: CN (occurrence: CN)
  Receive Date: 20231110
  Receipt Date: 20231110
  Transmission Date: 20240109
  Serious: Yes (Hospitalization)
  Sender: FDA-Public Use
  Company Number: CN-SHANGHAI JUNSHI BIOSCIENCES CO., LTD.-CN2023008534

PATIENT

DRUGS (2)
  1. TORIPALIMAB [Suspect]
     Active Substance: TORIPALIMAB
     Indication: Nonkeratinising carcinoma of nasopharynx
     Dosage: 240 MG
     Route: 041
     Dates: start: 20230924, end: 20230924
  2. CAPECITABINE [Suspect]
     Active Substance: CAPECITABINE
     Indication: Nonkeratinising carcinoma of nasopharynx
     Dosage: 1.5 G, BID, D1-D14
     Route: 048
     Dates: start: 20230924, end: 20231007

REACTIONS (2)
  - White blood cell count decreased [Recovering/Resolving]
  - Neutrophil count decreased [Recovering/Resolving]

NARRATIVE: CASE EVENT DATE: 20231023
